FAERS Safety Report 13585652 (Version 1)
Quarter: 2017Q2

REPORT INFORMATION
  Report Type: Spontaneous
  Country: JP (occurrence: JP)
  Receive Date: 20170526
  Receipt Date: 20170526
  Transmission Date: 20170830
  Serious: Yes (Hospitalization)
  Sender: FDA-Public Use
  Company Number: JP-PFIZER INC-2017227627

PATIENT
  Age: 80 Year
  Sex: Male

DRUGS (3)
  1. HYPEN [Suspect]
     Active Substance: ETODOLAC
  2. LOXONIN [Suspect]
     Active Substance: LOXOPROFEN SODIUM
  3. LYRICA [Suspect]
     Active Substance: PREGABALIN

REACTIONS (1)
  - Gastrointestinal ulcer haemorrhage [Recovered/Resolved]
